FAERS Safety Report 7326388-X (Version None)
Quarter: 2011Q1

REPORT INFORMATION
  Report Type: 
  Country: None (occurrence: None)
  Receive Date: 20110302
  Receipt Date: 20110218
  Transmission Date: 20110831
  Serious: Yes (Other)
  Sender: FDA-Public Use
  Company Number: US-SANOFI-AVENTIS-2011SA011996

PATIENT
  Age: 76 Year
  Sex: Female

DRUGS (2)
  1. METFORMIN [Suspect]
  2. AMARYL [Suspect]
     Route: 065

REACTIONS (3)
  - BLOOD GLUCOSE INCREASED [None]
  - LACTIC ACIDOSIS [None]
  - INFECTION [None]
